FAERS Safety Report 9937997 (Version 2)
Quarter: 2014Q1

REPORT INFORMATION
  Report Type: Report from Study
  Country: CO (occurrence: CO)
  Receive Date: 20140303
  Receipt Date: 20140304
  Transmission Date: 20141002
  Serious: Yes (Death)
  Sender: FDA-Public Use
  Company Number: CO-ROCHE-1358623

PATIENT
  Age: 63 Year
  Sex: Female

DRUGS (2)
  1. LUCENTIS [Suspect]
     Indication: DIABETIC RETINAL OEDEMA
     Route: 050
  2. LUCENTIS [Suspect]
     Dosage: LAST DOSE PRIOR TO SAE
     Route: 050
     Dates: start: 201310, end: 201310

REACTIONS (1)
  - Breast cancer [Fatal]
